FAERS Safety Report 7770478-4 (Version None)
Quarter: 2011Q3

REPORT INFORMATION
  Report Type: 
  Country: None (occurrence: None)
  Receive Date: 20110922
  Receipt Date: 20110615
  Transmission Date: 20111222
  Serious: No
  Sender: FDA-Public Use
  Company Number: US-ASTRAZENECA-2011SE36663

PATIENT
  Age: 15 Year
  Sex: Male

DRUGS (1)
  1. SEROQUEL XR [Suspect]
     Indication: AUTISM
     Dosage: DAILY
     Route: 048

REACTIONS (3)
  - OFF LABEL USE [None]
  - DRUG ADMINISTERED TO PATIENT OF INAPPROPRIATE AGE [None]
  - WHITE BLOOD CELL COUNT DECREASED [None]
